FAERS Safety Report 5313101-0 (Version None)
Quarter: 2007Q2

REPORT INFORMATION
  Report Type: 
  Country: None (occurrence: None)
  Receive Date: 20070430
  Receipt Date: 20070419
  Transmission Date: 20071010
  Serious: Yes (Other)
  Sender: FDA-Public Use
  Company Number: US-PFIZER INC-2007031976

PATIENT
  Sex: Female
  Weight: 104.3 kg

DRUGS (2)
  1. SUTENT [Suspect]
     Indication: BREAST CANCER
     Dates: start: 20070301
  2. ANTI-DIABETICS [Concomitant]

REACTIONS (1)
  - ABSCESS [None]
